FAERS Safety Report 11668596 (Version 2)
Quarter: 2015Q4

REPORT INFORMATION
  Report Type: Spontaneous
  Country: US (occurrence: US)
  Receive Date: 20151027
  Receipt Date: 20151104
  Transmission Date: 20160304
  Serious: Yes (Other)
  Sender: FDA-Public Use
  Company Number: US-GLAXOSMITHKLINE-US2015148900

PATIENT
  Age: 65 Year
  Sex: Female

DRUGS (14)
  1. LEVOTHYROXINE. [Concomitant]
     Active Substance: LEVOTHYROXINE
  2. INSULIN LEVEMIR [Concomitant]
  3. ATENOLOL. [Concomitant]
     Active Substance: ATENOLOL
  4. TANZEUM [Suspect]
     Active Substance: ALBIGLUTIDE
     Indication: TYPE 2 DIABETES MELLITUS
     Dosage: 30 MG, WE
     Route: 042
     Dates: start: 201508, end: 201510
  5. TRIBENZOR [Concomitant]
     Active Substance: AMLODIPINE BESYLATE\HYDROCHLOROTHIAZIDE\OLMESARTAN MEDOXOMIL
  6. LISINOPRIL. [Concomitant]
     Active Substance: LISINOPRIL
  7. OXYBUTYNIN [Concomitant]
     Active Substance: OXYBUTYNIN
  8. WARFARIN [Concomitant]
     Active Substance: WARFARIN
  9. VITAMIN D [Concomitant]
     Active Substance: CHOLECALCIFEROL
  10. DONEPEZIL. [Concomitant]
     Active Substance: DONEPEZIL
  11. FUROSEMIDE. [Concomitant]
     Active Substance: FUROSEMIDE
  12. ATORVASTATIN [Concomitant]
     Active Substance: ATORVASTATIN
  13. FLECAINIDE [Concomitant]
     Active Substance: FLECAINIDE
  14. TANZEUM [Suspect]
     Active Substance: ALBIGLUTIDE
     Dosage: 50 MG, WE
     Route: 042
     Dates: start: 201510

REACTIONS (8)
  - Decreased appetite [Not Recovered/Not Resolved]
  - Abdominal discomfort [Not Recovered/Not Resolved]
  - Weight decreased [Not Recovered/Not Resolved]
  - Abdominal pain [Not Recovered/Not Resolved]
  - Accident [Unknown]
  - Diverticulitis [Unknown]
  - Diarrhoea [Unknown]
  - Condition aggravated [Unknown]

NARRATIVE: CASE EVENT DATE: 20151007
